FAERS Safety Report 10204627 (Version 1)
Quarter: 2014Q2

REPORT INFORMATION
  Report Type: Spontaneous
  Country: US (occurrence: US)
  Receive Date: 20140529
  Receipt Date: 20140529
  Transmission Date: 20141212
  Serious: Yes (Other)
  Sender: FDA-Public Use
  Company Number: US-TEVA-483743USA

PATIENT
  Sex: Female

DRUGS (4)
  1. COPAXONE [Suspect]
  2. BETASERON [Suspect]
  3. AVONEX [Suspect]
  4. TECFIDERA [Suspect]

REACTIONS (2)
  - Multiple sclerosis [Unknown]
  - Drug ineffective [Unknown]
